FAERS Safety Report 8397160-7 (Version None)
Quarter: 2012Q2

REPORT INFORMATION
  Report Type: 
  Country: None (occurrence: None)
  Receive Date: 20120530
  Receipt Date: 20120524
  Transmission Date: 20120825
  Serious: Yes (Hospitalization, Disabling, Other)
  Sender: FDA-Public Use
  Company Number: CA-ABBOTT-11P-028-0867665-00

PATIENT
  Sex: Male
  Weight: 55.388 kg

DRUGS (10)
  1. TRUVADA [Concomitant]
     Indication: PRODUCT USED FOR UNKNOWN INDICATION
  2. VIREAD [Concomitant]
     Indication: HIV INFECTION
     Route: 048
  3. ASPIRIN [Concomitant]
     Indication: PRODUCT USED FOR UNKNOWN INDICATION
  4. VIRAMUNE [Concomitant]
     Indication: HIV INFECTION
     Route: 048
  5. KALETRA [Suspect]
     Indication: HIV INFECTION
     Dosage: 200 MG/ 50 MG, 2 TABS IN 1 DAY
     Route: 048
     Dates: start: 20050523
  6. KALETRA [Suspect]
     Indication: ANTIRETROVIRAL THERAPY
  7. METOPROLOL TARTRATE [Concomitant]
     Indication: CARDIAC DISORDER
     Dosage: 25MG, 0.33TABLET
     Route: 048
  8. KALETRA [Suspect]
     Indication: HIV INFECTION
     Dates: end: 20120213
  9. KALETRA [Suspect]
     Indication: ANTIRETROVIRAL THERAPY
  10. LIPITOR [Concomitant]
     Indication: PRODUCT USED FOR UNKNOWN INDICATION
     Dosage: 100 MG QHS
     Route: 048

REACTIONS (8)
  - OESOPHAGEAL CARCINOMA [None]
  - GASTRIC OPERATION [None]
  - DYSPHAGIA [None]
  - OESOPHAGEAL FOOD IMPACTION [None]
  - WRONG TECHNIQUE IN DRUG USAGE PROCESS [None]
  - ABDOMINAL DISCOMFORT [None]
  - WEIGHT DECREASED [None]
  - OESOPHAGECTOMY [None]
